FAERS Safety Report 17010508 (Version 1)
Quarter: 2019Q4

REPORT INFORMATION
  Report Type: Report from Study
  Country: CO (occurrence: CO)
  Receive Date: 20191108
  Receipt Date: 20191108
  Transmission Date: 20200122
  Serious: Yes (Death)
  Sender: FDA-Public Use
  Company Number: CO-ASTRAZENECA-2019SF58598

PATIENT
  Age: 28124 Day
  Sex: Female

DRUGS (1)
  1. SYMBICORT [Suspect]
     Active Substance: BUDESONIDE\FORMOTEROL FUMARATE DIHYDRATE
     Indication: ASTHMA
     Dosage: 160 UG, EVERY 12 HOURS
     Route: 055
     Dates: start: 20160701, end: 20171130

REACTIONS (1)
  - Death [Fatal]

NARRATIVE: CASE EVENT DATE: 20190501
